FAERS Safety Report 6609138-1 (Version None)
Quarter: 2010Q1

REPORT INFORMATION
  Report Type: 
  Country: None (occurrence: None)
  Receive Date: 20100226
  Receipt Date: 20100226
  Transmission Date: 20100710
  Serious: Yes (Death)
  Sender: FDA-Public Use
  Company Number: None

PATIENT
  Age: 74 Year
  Sex: Male
  Weight: 105 kg

DRUGS (2)
  1. SYNERCID [Suspect]
     Indication: ABSCESS
     Dosage: 500 MG Q8 IV
     Route: 042
     Dates: start: 20100121, end: 20100203
  2. TELAVANCIN HYDROCHLORIDE [Suspect]
     Dosage: 600 MG Q48 IV
     Route: 042
     Dates: start: 20100203, end: 20100219

REACTIONS (1)
  - ENCEPHALOPATHY [None]
